FAERS Safety Report 5422102-3 (Version None)
Quarter: 2007Q3

REPORT INFORMATION
  Report Type: 
  Country: None (occurrence: None)
  Receive Date: 20070821
  Receipt Date: 20070821
  Transmission Date: 20080115
  Serious: Yes (Life-Threatening)
  Sender: FDA-Public Use
  Company Number: None

PATIENT
  Age: 20 Year
  Sex: Female

DRUGS (1)
  1. NUVARING [Suspect]
     Indication: CONTRACEPTION
     Dosage: NUVARING MONTHLY VAG
     Route: 067

REACTIONS (3)
  - ANEURYSM [None]
  - ATRIAL SEPTAL DEFECT [None]
  - EMBOLIC STROKE [None]
